FAERS Safety Report 13209732 (Version 2)
Quarter: 2017Q1

REPORT INFORMATION
  Report Type: Spontaneous
  Country: US (occurrence: US)
  Receive Date: 20170209
  Receipt Date: 20170309
  Transmission Date: 20170428
  Serious: No
  Sender: FDA-Public Use
  Company Number: US-PFIZER INC-2017051013

PATIENT
  Age: 6 Year
  Sex: Female

DRUGS (3)
  1. QUILLIVANT XR [Suspect]
     Active Substance: METHYLPHENIDATE HYDROCHLORIDE
     Indication: ATTENTION DEFICIT/HYPERACTIVITY DISORDER
     Dosage: 4 ML, 1X/DAY (IN THE MORNING)
     Route: 048
     Dates: start: 20170119, end: 20170119
  2. QUILLIVANT XR [Suspect]
     Active Substance: METHYLPHENIDATE HYDROCHLORIDE
     Dosage: 5 ML, 1X/DAY (IN THE MORNING)
     Route: 048
     Dates: start: 20170120, end: 20170120
  3. QUILLIVANT XR [Suspect]
     Active Substance: METHYLPHENIDATE HYDROCHLORIDE
     Dosage: 6.25 ML, 1X/DAY; SEVEN DAYS A WEEK (IN THE MORNING)
     Route: 048
     Dates: start: 20170121

REACTIONS (2)
  - Condition aggravated [Not Recovered/Not Resolved]
  - Drug effect decreased [Not Recovered/Not Resolved]

NARRATIVE: CASE EVENT DATE: 201701
